FAERS Safety Report 12136992 (Version 1)
Quarter: 2016Q1

REPORT INFORMATION
  Report Type: Spontaneous
  Country: None (occurrence: None)
  Receive Date: 20160301
  Receipt Date: 20160301
  Transmission Date: 20160526
  Serious: No
  Sender: FDA-Public Use
  Company Number: None

PATIENT
  Age: 68 Year
  Sex: Female

DRUGS (1)
  1. ANASTROZOLE 1MG [Suspect]
     Active Substance: ANASTROZOLE
     Dosage: 1 TAB QD ORAL
     Route: 048
     Dates: start: 20160203, end: 20160229

REACTIONS (3)
  - Pain [None]
  - Hot flush [None]
  - Dyspnoea [None]

NARRATIVE: CASE EVENT DATE: 20160218
